FAERS Safety Report 7395372 (Version 3)
Quarter: 2014Q1

REPORT INFORMATION
  Report Type: Spontaneous
  Country: US (occurrence: US)
  Receive Date: 20100521
  Receipt Date: 20140129
  Transmission Date: 20141002
  Serious: No
  Sender: FDA-Public Use
  Company Number: US-JNJFOC-20100503343

PATIENT
  Sex: Female

DRUGS (1)
  1. SANDOZ FENTANYL TRANSDERMAL SYSTEM [Suspect]
     Indication: PRODUCT USED FOR UNKNOWN INDICATION
     Dosage: NDC: 0781-7112-55
     Route: 062
     Dates: start: 20100506

REACTIONS (4)
  - Wrong technique in drug usage process [Unknown]
  - Drug ineffective [Not Recovered/Not Resolved]
  - Extra dose administered [Unknown]
  - Product quality issue [Unknown]
